FAERS Safety Report 9214905 (Version 2)
Quarter: 2013Q4

REPORT INFORMATION
  Report Type: Spontaneous
  Country: US (occurrence: US)
  Receive Date: 20130405
  Receipt Date: 20131119
  Transmission Date: 20140711
  Serious: Yes (Hospitalization, Other)
  Sender: FDA-Public Use
  Company Number: US-BAYER-2013-041261

PATIENT
  Age: 27 Year
  Sex: Female

DRUGS (5)
  1. YAZ [Suspect]
     Dosage: UNK
     Dates: start: 2007, end: 2009
  2. YASMIN [Suspect]
     Dosage: UNK
     Dates: start: 2007, end: 2009
  3. OCELLA [Suspect]
     Dosage: UNK
     Dates: start: 2007, end: 2009
  4. CHANTIX [Concomitant]
     Dosage: 1 MG TABLET, TAKE 0.5 MG FOR 3 DAYS, THEN TAKE 0.5 MG TWICE A DAY FOR 4 DAYS, THEN TAKE 1 MG TWICE A
     Dates: start: 20080305, end: 20080531
  5. VICODIN [Concomitant]

REACTIONS (10)
  - Cholelithiasis [None]
  - Abdominal pain [None]
  - Injury [None]
  - General physical health deterioration [None]
  - Anxiety [None]
  - Emotional distress [None]
  - Pain [None]
  - Anhedonia [None]
  - Fear [None]
  - Cholecystitis [None]
